FAERS Safety Report 23167154 (Version 1)
Quarter: 2023Q4

REPORT INFORMATION
  Report Type: Spontaneous
  Country: US (occurrence: None)
  Receive Date: 20231109
  Receipt Date: 20231109
  Transmission Date: 20240110
  Serious: No
  Sender: FDA-Public Use
  Company Number: None

PATIENT
  Age: 80 Year
  Sex: Female

DRUGS (2)
  1. SOTALOL HYDROCHLORIDE [Suspect]
     Active Substance: SOTALOL HYDROCHLORIDE
     Indication: Atrial flutter
     Dosage: FREQUENCY : TWICE A DAY;?
     Route: 048
  2. SOTALOL [Suspect]
     Active Substance: SOTALOL

REACTIONS (4)
  - Product name confusion [None]
  - Product label confusion [None]
  - Product packaging confusion [None]
  - Product label issue [None]

NARRATIVE: CASE EVENT DATE: 20231101
